FAERS Safety Report 12829379 (Version 2)
Quarter: 2017Q3

REPORT INFORMATION
  Report Type: Spontaneous
  Country: US (occurrence: US)
  Receive Date: 20161007
  Receipt Date: 20170928
  Transmission Date: 20171127
  Serious: No
  Sender: FDA-Public Use
  Company Number: US-SA-2016SA051617

PATIENT
  Age: 40 Year
  Sex: Female
  Weight: 73.2 kg

DRUGS (12)
  1. AUBAGIO [Suspect]
     Active Substance: TERIFLUNOMIDE
     Indication: MULTIPLE SCLEROSIS
     Route: 048
     Dates: start: 201602
  2. VISTARIL [Concomitant]
     Active Substance: HYDROXYZINE PAMOATE
  3. FLONASE [Concomitant]
     Active Substance: FLUTICASONE PROPIONATE
     Dosage: 50 MCG/INH, 2 SPRAYS
     Route: 055
  4. TIZANIDINE. [Concomitant]
     Active Substance: TIZANIDINE
  5. MACRODANTIN [Concomitant]
     Active Substance: NITROFURANTOIN
     Dosage: MACROCRYSTALS
  6. VITAMIN B12 [Concomitant]
     Active Substance: CYANOCOBALAMIN
  7. VITAMIN D [Concomitant]
     Active Substance: CHOLECALCIFEROL
  8. ASPIRIN. [Concomitant]
     Active Substance: ASPIRIN
  9. ESTRACE [Concomitant]
     Active Substance: ESTRADIOL
     Dosage: DOSE: 0.1 MG/G?VAGIANL CREAM
     Route: 061
  10. AUBAGIO [Suspect]
     Active Substance: TERIFLUNOMIDE
     Indication: MULTIPLE SCLEROSIS
     Route: 048
     Dates: start: 20151102, end: 201601
  11. ADVIL [Concomitant]
     Active Substance: IBUPROFEN
  12. VITAMIN D3 [Concomitant]
     Active Substance: CHOLECALCIFEROL

REACTIONS (1)
  - Alopecia [Not Recovered/Not Resolved]

NARRATIVE: CASE EVENT DATE: 20160229
